FAERS Safety Report 18691995 (Version 4)
Quarter: 2021Q1

REPORT INFORMATION
  Report Type: Spontaneous
  Country: FR (occurrence: FR)
  Receive Date: 20210102
  Receipt Date: 20210216
  Transmission Date: 20210419
  Serious: Yes (Life-Threatening, Hospitalization, Other)
  Sender: FDA-Public Use
  Company Number: FR-MACLEODS PHARMACEUTICALS US LTD-MAC2020029636

PATIENT

DRUGS (11)
  1. PREGABALINE MYLAN [Suspect]
     Active Substance: PREGABALIN
     Indication: INSOMNIA
     Dosage: UNK, SINGLE
     Route: 048
  2. SERESTA [Suspect]
     Active Substance: OXAZEPAM
     Indication: INSOMNIA
     Dosage: 2 DOSAGE FORM, PRN, AS NECESSARY, +2 IF NEEDED, 50MG
     Route: 048
  3. PREGABALINE MYLAN [Suspect]
     Active Substance: PREGABALIN
     Indication: ANXIETY
     Dosage: 2 DOSAGE FORM, QID (2 CAPS 4 TIMES A DAY) (2?2?2?2)
     Route: 048
  4. CIRCADIN LP [Concomitant]
     Indication: PRODUCT USED FOR UNKNOWN INDICATION
     Dosage: 1 DOSAGE FORM, QD, 0?0?1
     Route: 065
  5. SERESTA [Suspect]
     Active Substance: OXAZEPAM
     Dosage: 4 DOSAGE FORM, PRN, 1 TO 4 A DAY IF NEEDED, 10MG
     Route: 048
  6. SERESTA [Suspect]
     Active Substance: OXAZEPAM
     Dosage: 1 DOSAGE FORM, PRN, 1 TO 4 A DAY IF NEEDED, 10MG
     Route: 048
  7. SERESTA [Suspect]
     Active Substance: OXAZEPAM
     Indication: ANXIETY
     Dosage: 1 DOSAGE FORM, QD, 0?0?1, 50MG
     Route: 048
  8. SERESTA [Suspect]
     Active Substance: OXAZEPAM
     Dosage: UNK UNK, SINGLE
     Route: 048
  9. VENLAFAXINE [Suspect]
     Active Substance: VENLAFAXINE HYDROCHLORIDE
     Indication: PRODUCT USED FOR UNKNOWN INDICATION
     Dosage: 75 MILLIGRAM, TID, (3 DOSAGE FORM, ONCE DAILY), SUSTAINED?RELEASE
     Route: 048
  10. VENLAFAXINE [Suspect]
     Active Substance: VENLAFAXINE HYDROCHLORIDE
     Dosage: UNK, SINGLE, TABLET
     Route: 048
     Dates: start: 20190902, end: 20190902
  11. LORMETAZEPAM [Concomitant]
     Active Substance: LORMETAZEPAM
     Indication: PRODUCT USED FOR UNKNOWN INDICATION
     Dosage: 1 DOSAGE FORM, QD, 0 ? 0 ? 1
     Route: 065

REACTIONS (11)
  - Intentional overdose [Recovering/Resolving]
  - Sinus bradycardia [Recovering/Resolving]
  - Electrocardiogram QT prolonged [Recovering/Resolving]
  - Coma [Recovering/Resolving]
  - Suicide attempt [Recovered/Resolved]
  - Bezoar [Recovering/Resolving]
  - Lactic acidosis [Recovering/Resolving]
  - Drug level increased [Recovering/Resolving]
  - Toxicity to various agents [Recovering/Resolving]
  - Loss of consciousness [Recovering/Resolving]
  - Cardiotoxicity [Recovering/Resolving]

NARRATIVE: CASE EVENT DATE: 20190902
